FAERS Safety Report 8769550 (Version 1)
Quarter: 2012Q4

REPORT INFORMATION
  Report Type: 
  Country: US (occurrence: US)
  Receive Date: 20120905
  Receipt Date: 20120905
  Transmission Date: 20130627
  Serious: No
  Sender: FDA-Public Use
  Company Number: US-COVIDIEN/TYCO HEALTHCARE/MALLINCKRODT-T201200053

PATIENT
  Age: 76 None
  Sex: Female
  Weight: 69.84 kg

DRUGS (15)
  1. MD-GASTROVIEW [Suspect]
     Indication: COMPUTERISED TOMOGRAM
     Dosage: Dose divided into two cups with water
     Route: 048
     Dates: start: 20110915, end: 20110915
  2. PRAVASTATIN [Concomitant]
     Indication: BLOOD CHOLESTEROL INCREASED
     Dosage: 80 mg, qd
  3. LEVOTHYROXINE [Concomitant]
     Indication: THYROID DISORDER
     Dosage: 75 ug/hr, qd
  4. MAXZIDE [Concomitant]
     Indication: DIURETIC THERAPY
     Dosage: 20 mg, qd
  5. LEXAPRO [Concomitant]
     Indication: DEPRESSION
     Dosage: 20 mg, qd
  6. HYDROXYZINE [Concomitant]
     Indication: PRURITUS
     Dosage: 25 mg, bid
  7. ESTROGEN [Concomitant]
     Dosage: 1, qd
  8. DIAZEPAM [Concomitant]
     Indication: SLEEP DISORDER
     Dosage: 5 mg, 1.5 tablet at bedtime
  9. VITAMIN D NOS [Concomitant]
     Dosage: 50000 IU, 1 time per week
  10. FOLIC ACID [Concomitant]
     Dosage: 1 mg, qd
  11. VERAPAMIL [Concomitant]
     Dosage: 240 mg, qd
  12. DILANTIN                           /00017401/ [Concomitant]
     Indication: CONVULSION
     Dosage: 100 mg, 2 one day/ 3 next day
  13. BENADRYL                           /00000402/ [Concomitant]
     Dosage: UNK, prn
  14. ALLERGY SHOTS [Concomitant]
  15. IMODIUM [Concomitant]

REACTIONS (8)
  - Renal function test abnormal [Unknown]
  - Oral discomfort [Recovered/Resolved]
  - Tongue discolouration [Recovered/Resolved]
  - Lip blister [Recovered/Resolved]
  - Tooth discolouration [Recovered/Resolved]
  - Burning sensation [Recovered/Resolved]
  - Cystitis [Recovered/Resolved]
  - Inflammation [Unknown]
